FAERS Safety Report 5321842-4 (Version None)
Quarter: 2007Q1

REPORT INFORMATION
  Report Type: 
  Country: None (occurrence: None)
  Receive Date: 20070215
  Receipt Date: 20061114
  Transmission Date: 20070707
  Serious: No
  Sender: FDA-Public Use
  Company Number: 200616557BWH

PATIENT
  Age: 78 Year
  Sex: Male

DRUGS (5)
  1. NEXAVAR [Suspect]
     Indication: RENAL CELL CARCINOMA STAGE UNSPECIFIED
     Dosage: 400 MG, BID, ORAL
     Route: 048
     Dates: start: 20060918
  2. PROSCAR [Concomitant]
  3. FLOMAX [Concomitant]
  4. AVANDIA [Concomitant]
  5. MULTI-VITAMIN [Concomitant]

REACTIONS (7)
  - DYSURIA [None]
  - FATIGUE [None]
  - HEADACHE [None]
  - MICTURITION URGENCY [None]
  - POLLAKIURIA [None]
  - RASH MACULAR [None]
  - URINARY TRACT INFECTION [None]
